FAERS Safety Report 13427681 (Version 1)
Quarter: 2017Q2

REPORT INFORMATION
  Report Type: Spontaneous
  Country: US (occurrence: US)
  Receive Date: 20170411
  Receipt Date: 20170411
  Transmission Date: 20170830
  Serious: Yes (Other)
  Sender: FDA-Public Use
  Company Number: US-JNJFOC-20170407684

PATIENT

DRUGS (1)
  1. HUMAN CLOTTABLE PROTEIN/HUMAN THROMBIN [Suspect]
     Active Substance: FIBRINOGEN HUMAN\THROMBIN HUMAN
     Indication: PROPHYLAXIS
     Route: 061

REACTIONS (4)
  - Off label use [Unknown]
  - Extradural haematoma [Unknown]
  - Wound complication [Unknown]
  - Radiculopathy [Unknown]
